FAERS Safety Report 8265889-7 (Version None)
Quarter: 2012Q2

REPORT INFORMATION
  Report Type: 
  Country: None (occurrence: None)
  Receive Date: 20120406
  Receipt Date: 20120402
  Transmission Date: 20120825
  Serious: Yes (Hospitalization)
  Sender: FDA-Public Use
  Company Number: FR-GLAXOSMITHKLINE-B0792585A

PATIENT
  Sex: Male

DRUGS (1)
  1. NARATRIPTAN [Suspect]
     Indication: MIGRAINE
     Dosage: 2.5MG SINGLE DOSE
     Route: 048
     Dates: start: 20120303, end: 20120303

REACTIONS (1)
  - ACUTE CORONARY SYNDROME [None]
